FAERS Safety Report 17632924 (Version 4)
Quarter: 2020Q4

REPORT INFORMATION
  Report Type: Spontaneous
  Country: US (occurrence: US)
  Receive Date: 20200406
  Receipt Date: 20201228
  Transmission Date: 20210113
  Serious: No
  Sender: FDA-Public Use
  Company Number: US-SA-2020SA086048

PATIENT

DRUGS (2)
  1. CEREZYME [Suspect]
     Active Substance: IMIGLUCERASE
     Indication: GAUCHER^S DISEASE
     Dosage: 2400 U, QOW
     Route: 041
     Dates: start: 20200129, end: 2020
  2. CEREZYME [Suspect]
     Active Substance: IMIGLUCERASE
     Dosage: 2500 U, QOW
     Route: 041
     Dates: start: 2020

REACTIONS (2)
  - Intentional dose omission [Unknown]
  - Product dose omission issue [Unknown]

NARRATIVE: CASE EVENT DATE: 20200311
